FAERS Safety Report 5461123-1 (Version None)
Quarter: 2007Q3

REPORT INFORMATION
  Report Type: 
  Country: None (occurrence: None)
  Receive Date: 20070920
  Receipt Date: 20070913
  Transmission Date: 20080115
  Serious: Yes (Other)
  Sender: FDA-Public Use
  Company Number: PHRM2007FR01779

PATIENT
  Sex: Male

DRUGS (5)
  1. MANTADIX [Concomitant]
  2. EFFEXOR [Concomitant]
  3. SOLU-MEDROL [Concomitant]
  4. LIORESAL [Suspect]
     Indication: MULTIPLE SCLEROSIS
     Dosage: 60 MG/DAY
     Route: 048
     Dates: start: 19970101
  5. LEXOMIL [Concomitant]
     Route: 048

REACTIONS (4)
  - CHEST PAIN [None]
  - DYSPNOEA [None]
  - PERICARDITIS [None]
  - PULMONARY EMBOLISM [None]
